FAERS Safety Report 5326933-X (Version None)
Quarter: 2007Q2

REPORT INFORMATION
  Report Type: 
  Country: None (occurrence: None)
  Receive Date: 20070504
  Receipt Date: 20070423
  Transmission Date: 20071010
  Serious: Yes (Other)
  Sender: FDA-Public Use
  Company Number: B0468456A

PATIENT
  Age: 69 Year
  Sex: Female

DRUGS (4)
  1. FLUTICASONE PROPIONATE+SALMETEROL XINAFOATE [Suspect]
     Indication: ASTHMA
     Dosage: UNK / TWICE PER DAY / INHALED
     Route: 055
  2. PREDNISONE TAB [Suspect]
     Indication: ASTHMA
     Dosage: 60 MG / SINGLE DOSE / ORAL
     Route: 048
  3. ALBUTEROL SULFATE [Concomitant]
  4. IPRATROPIUM BROMIDE [Concomitant]

REACTIONS (9)
  - CHOKING SENSATION [None]
  - DRUG HYPERSENSITIVITY [None]
  - FLUSHING [None]
  - HYPOTENSION [None]
  - RESPIRATORY DISORDER [None]
  - RESPIRATORY DISTRESS [None]
  - THROAT TIGHTNESS [None]
  - TRYPTASE INCREASED [None]
  - URTICARIA [None]
